FAERS Safety Report 6634309-8 (Version None)
Quarter: 2010Q1

REPORT INFORMATION
  Report Type: 
  Country: None (occurrence: None)
  Receive Date: 20100315
  Receipt Date: 20100212
  Transmission Date: 20100710
  Serious: No
  Sender: FDA-Public Use
  Company Number: US-BAYER-201011953BCC

PATIENT
  Age: 77 Year
  Sex: Male
  Weight: 100 kg

DRUGS (7)
  1. ALEVE [Suspect]
     Indication: ARTHRALGIA
     Dosage: TOTAL DAILY DOSE: 440 MG  UNIT DOSE: 220 MG
     Route: 048
     Dates: start: 20100208
  2. ABILIFY [Concomitant]
     Route: 065
  3. ZOLOFT [Concomitant]
     Route: 065
  4. LEVOTHYROXINE SODIUM [Concomitant]
     Route: 065
  5. ARICEPT [Concomitant]
     Route: 065
  6. AMENDA [Concomitant]
     Route: 065
  7. AVODART [Concomitant]
     Route: 065

REACTIONS (3)
  - FATIGUE [None]
  - HYPERSOMNIA [None]
  - SOMNOLENCE [None]
